FAERS Safety Report 24281159 (Version 1)
Quarter: 2024Q3

REPORT INFORMATION
  Report Type: Spontaneous
  Country: TR (occurrence: TR)
  Receive Date: 20240904
  Receipt Date: 20240904
  Transmission Date: 20241016
  Serious: Yes (Other)
  Sender: PFIZER
  Company Number: TR-PFIZER INC-PV202400115040

PATIENT
  Age: 72 Year
  Sex: Male

DRUGS (4)
  1. RITUXIMAB [Suspect]
     Active Substance: RITUXIMAB
     Indication: Microscopic polyangiitis
     Dosage: 1 G IN EVERY 15 DAYS/6 MONTHS
  2. RITUXIMAB [Suspect]
     Active Substance: RITUXIMAB
     Dosage: ONE MONTH LATER 500 MG
  3. METHYLPREDNISOLONE [Concomitant]
     Active Substance: METHYLPREDNISOLONE
     Indication: Microscopic polyangiitis
     Dosage: 80 MG
  4. ISONIAZID [Concomitant]
     Active Substance: ISONIAZID
     Indication: Microscopic polyangiitis

REACTIONS (3)
  - Bicytopenia [Recovered/Resolved]
  - Off label use [Unknown]
  - Off label use [Unknown]
